FAERS Safety Report 17487709 (Version 3)
Quarter: 2020Q4

REPORT INFORMATION
  Report Type: Spontaneous
  Country: US (occurrence: US)
  Receive Date: 20200303
  Receipt Date: 20201124
  Transmission Date: 20210113
  Serious: Yes (Other)
  Sender: FDA-Public Use
  Company Number: US-PFIZER INC-2020090931

PATIENT
  Age: 68 Year
  Sex: Male
  Weight: 120.2 kg

DRUGS (2)
  1. DILANTIN [Suspect]
     Active Substance: PHENYTOIN
     Indication: SEIZURE
     Dosage: 200 MG, 2X/DAY, (TWO 100MG CAPSULES BY MOUTH EVERY TWELVE HOURS)
     Route: 048
  2. DILANTIN [Suspect]
     Active Substance: PHENYTOIN
     Dosage: 100 MG, 2X/DAY  (DILANTIN EXTENDED 100 MG; BID(TWICE A DAY))

REACTIONS (7)
  - Ageusia [Recovering/Resolving]
  - Pneumonia [Recovering/Resolving]
  - Bronchitis [Recovering/Resolving]
  - Increased bronchial secretion [Recovering/Resolving]
  - Malaise [Unknown]
  - Anosmia [Recovering/Resolving]
  - Arthritis [Unknown]

NARRATIVE: CASE EVENT DATE: 202002
